FAERS Safety Report 8677926 (Version 2)
Quarter: 2012Q4

REPORT INFORMATION
  Report Type: 
  Country: JP (occurrence: JP)
  Receive Date: 20120723
  Receipt Date: 20120920
  Transmission Date: 20130627
  Serious: Yes (Death)
  Sender: FDA-Public Use
  Company Number: JP-ROCHE-1088785

PATIENT
  Age: 59 None
  Sex: Female
  Weight: 45 kg

DRUGS (6)
  1. HERCEPTIN [Suspect]
     Indication: GASTRIC CANCER RECURRENT
     Route: 041
     Dates: start: 20111007, end: 20111007
  2. HERCEPTIN [Suspect]
     Indication: GASTRIC CANCER RECURRENT
     Route: 041
     Dates: start: 20111028, end: 20120706
  3. FAMOTIDINE [Concomitant]
     Indication: PROPHYLAXIS
     Route: 041
     Dates: start: 20111007, end: 20120706
  4. ALOXI [Concomitant]
     Indication: PROPHYLAXIS
     Route: 041
     Dates: start: 20111007, end: 20120706
  5. DECADRON [Concomitant]
     Indication: PROPHYLAXIS
     Route: 041
     Dates: start: 20111007, end: 20120706
  6. TAXOL [Concomitant]
     Indication: GASTRIC CANCER RECURRENT
     Route: 041
     Dates: start: 20110902, end: 20120706

REACTIONS (1)
  - Gastrointestinal perforation [Fatal]
